FAERS Safety Report 23099863 (Version 2)
Quarter: 2023Q4

REPORT INFORMATION
  Report Type: Spontaneous
  Country: US (occurrence: US)
  Receive Date: 20231024
  Receipt Date: 20231218
  Transmission Date: 20240110
  Serious: No
  Sender: FDA-Public Use
  Company Number: US-PFIZER INC-PV202300134453

PATIENT
  Age: 77 Year
  Sex: Female

DRUGS (1)
  1. RETACRIT [Suspect]
     Active Substance: EPOETIN ALFA-EPBX
     Indication: Chronic kidney disease
     Dosage: 0.75 ML, CYCLIC (0.75 ML SQ Q 21 DAYS)
     Route: 058

REACTIONS (3)
  - Disturbance in attention [Unknown]
  - Off label use [Unknown]
  - Product dispensing issue [Unknown]
